FAERS Safety Report 22190405 (Version 2)
Quarter: 2023Q2

REPORT INFORMATION
  Report Type: Report from Study
  Country: NL (occurrence: NL)
  Receive Date: 20230410
  Receipt Date: 20230508
  Transmission Date: 20230722
  Serious: Yes (Hospitalization, Other)
  Sender: FDA-Public Use
  Company Number: NL-CELLTRION INC.-2023NL007005

PATIENT

DRUGS (35)
  1. RITUXIMAB [Suspect]
     Active Substance: RITUXIMAB
     Indication: Diffuse large B-cell lymphoma
     Dosage: 375 MG/M2 (EVERY 3 WEEKS)
     Route: 042
     Dates: start: 20221213, end: 20221213
  2. HYALURONIDASE (HUMAN RECOMBINANT)\RITUXIMAB [Suspect]
     Active Substance: HYALURONIDASE (HUMAN RECOMBINANT)\RITUXIMAB
     Indication: Diffuse large B-cell lymphoma
     Dosage: 1400 MG (EVERY 3 WEEKS)
     Route: 058
     Dates: start: 20230103, end: 20230103
  3. HYALURONIDASE (HUMAN RECOMBINANT)\RITUXIMAB [Suspect]
     Active Substance: HYALURONIDASE (HUMAN RECOMBINANT)\RITUXIMAB
     Dosage: 1400 MG (EVERY 3 WEEKS)
     Route: 058
     Dates: start: 20230207, end: 20230228
  4. HYALURONIDASE (HUMAN RECOMBINANT)\RITUXIMAB [Suspect]
     Active Substance: HYALURONIDASE (HUMAN RECOMBINANT)\RITUXIMAB
     Dosage: 1400 MG (EVERY 3 WEEKS)
     Route: 058
     Dates: start: 20230324
  5. DOXORUBICIN [Suspect]
     Active Substance: DOXORUBICIN
     Indication: Diffuse large B-cell lymphoma
     Dosage: 25 MG/M2 (EVERY 3 WEEKS)
     Route: 042
     Dates: start: 20221214, end: 20230103
  6. DOXORUBICIN [Suspect]
     Active Substance: DOXORUBICIN
     Dosage: 25 MG/M2 (EVERY 3 WEEKS)
     Route: 042
     Dates: start: 20230207, end: 20230228
  7. DOXORUBICIN [Suspect]
     Active Substance: DOXORUBICIN
     Dosage: 25 MG/M2 (EVERY 3 WEEKS)
     Route: 042
     Dates: start: 20230324
  8. EPCORITAMAB [Suspect]
     Active Substance: EPCORITAMAB
     Indication: Diffuse large B-cell lymphoma
     Dosage: 48 MG (EVERY 3 WEEKS)
     Route: 058
     Dates: start: 20230207, end: 20230228
  9. EPCORITAMAB [Suspect]
     Active Substance: EPCORITAMAB
     Dosage: 0.8 MG, QD
     Route: 058
     Dates: start: 20221219, end: 20221219
  10. EPCORITAMAB [Suspect]
     Active Substance: EPCORITAMAB
     Dosage: 0.16 MG, QD
     Route: 058
     Dates: start: 20221212, end: 20221212
  11. EPCORITAMAB [Suspect]
     Active Substance: EPCORITAMAB
     Dosage: 48 MG, 1/WEEK
     Route: 058
     Dates: start: 20221227, end: 20230117
  12. EPCORITAMAB [Suspect]
     Active Substance: EPCORITAMAB
     Dosage: 48 MG
     Route: 058
     Dates: start: 20230324
  13. CYCLOPHOSPHAMIDE [Suspect]
     Active Substance: CYCLOPHOSPHAMIDE
     Indication: Diffuse large B-cell lymphoma
     Dosage: 400 MG/M2 (EVERY 3 WEEKS)
     Route: 042
     Dates: start: 20221213, end: 20230103
  14. CYCLOPHOSPHAMIDE [Suspect]
     Active Substance: CYCLOPHOSPHAMIDE
     Dosage: 400 MG/M2 (EVERY 3 WEEKS)
     Route: 042
     Dates: start: 20230207, end: 20230228
  15. CYCLOPHOSPHAMIDE [Suspect]
     Active Substance: CYCLOPHOSPHAMIDE
     Dosage: 400 MG/M2 (EVERY 3 WEEKS)
     Route: 042
     Dates: start: 20230324
  16. PREDNISOLONE [Suspect]
     Active Substance: PREDNISOLONE
     Indication: Diffuse large B-cell lymphoma
     Dosage: 100 MG, QD
     Route: 048
     Dates: start: 20221219, end: 20221222
  17. PREDNISOLONE [Suspect]
     Active Substance: PREDNISOLONE
     Dosage: 100 MG, QD
     Route: 048
     Dates: start: 20230103, end: 20230107
  18. PREDNISOLONE [Suspect]
     Active Substance: PREDNISOLONE
     Dosage: 100 MG, QD
     Route: 048
     Dates: start: 20221227, end: 20221230
  19. PREDNISOLONE [Suspect]
     Active Substance: PREDNISOLONE
     Dosage: 100 MG, QD
     Route: 048
     Dates: start: 20221213, end: 20221216
  20. PREDNISOLONE [Suspect]
     Active Substance: PREDNISOLONE
     Dosage: 100 MG, QD
     Route: 048
     Dates: start: 20230324
  21. VINCRISTINE [Suspect]
     Active Substance: VINCRISTINE
     Indication: Diffuse large B-cell lymphoma
     Dosage: 1 MG/M2 (EVERY 3 WEEKS)
     Route: 042
     Dates: start: 20221212, end: 20230103
  22. VINCRISTINE [Suspect]
     Active Substance: VINCRISTINE
     Dosage: 1 MG/M2 (EVERY 3 WEEKS)
     Route: 042
     Dates: start: 20230207, end: 20230228
  23. VINCRISTINE [Suspect]
     Active Substance: VINCRISTINE
     Dosage: 1 MG/M2 (EVERY 3 WEEKS)
     Route: 042
     Dates: start: 20230324
  24. NYSTATIN [Concomitant]
     Active Substance: NYSTATIN
     Dosage: UNK
     Dates: start: 20221227
  25. ALLOPURINOL [Concomitant]
     Active Substance: ALLOPURINOL
     Dosage: UNK
     Dates: start: 20221212, end: 20221222
  26. PREDNISOLONE SODIUM SUCCINATE [Concomitant]
     Active Substance: PREDNISOLONE SODIUM SUCCINATE
     Dosage: UNK
     Dates: start: 20221212, end: 20221212
  27. CLEMASTINE [Concomitant]
     Active Substance: CLEMASTINE
     Dosage: UNK
     Dates: start: 20221212, end: 20230110
  28. METOCLOPRAMIDE [Concomitant]
     Active Substance: METOCLOPRAMIDE
     Dosage: UNK
     Dates: start: 20221212, end: 20230123
  29. MOVICOLON [Concomitant]
     Active Substance: POLYETHYLENE GLYCOL 3350\POTASSIUM CHLORIDE\SODIUM BICARBONATE\SODIUM CHLORIDE
     Dosage: UNK
     Dates: start: 20221213
  30. SOTALOL [Concomitant]
     Active Substance: SOTALOL
     Dosage: UNK
     Dates: start: 20220831, end: 20230124
  31. ACETAMINOPHEN [Concomitant]
     Active Substance: ACETAMINOPHEN
     Dosage: UNK
     Dates: start: 20221212, end: 20230228
  32. POTASSIUM PHOSPHATE DIBASIC;POTASSIUM PHOSPHATE MONOBASIC;SODIUM PHOSP [Concomitant]
     Dosage: UNK
     Dates: start: 20221228, end: 20221228
  33. PANTOPRAZOLE [Concomitant]
     Active Substance: PANTOPRAZOLE
     Dosage: UNK
     Dates: start: 20221219, end: 20230128
  34. ROSUVASTATIN [Concomitant]
     Active Substance: ROSUVASTATIN
     Dosage: UNK
     Dates: start: 20220602
  35. LEVOCETIRIZINE [Concomitant]
     Active Substance: LEVOCETIRIZINE
     Dosage: UNK
     Dates: start: 20230103, end: 20230228

REACTIONS (4)
  - Pyloric stenosis [Recovered/Resolved]
  - Candida infection [Recovered/Resolved]
  - Vomiting [Not Recovered/Not Resolved]
  - Device dislocation [Recovered/Resolved with Sequelae]

NARRATIVE: CASE EVENT DATE: 20230103
